FAERS Safety Report 4742489-4 (Version None)
Quarter: 2005Q3

REPORT INFORMATION
  Report Type: 
  Country: None (occurrence: None)
  Receive Date: 20050808
  Receipt Date: 20050723
  Transmission Date: 20060218
  Serious: Yes (Hospitalization)
  Sender: FDA-Public Use
  Company Number: USA0507103518

PATIENT
  Age: 88 Year
  Sex: Female

DRUGS (1)
  1. HUMALOG MIX 75/25 [Suspect]
     Indication: DIABETES MELLITUS
     Dosage: 30 U

REACTIONS (7)
  - BLOOD GLUCOSE DECREASED [None]
  - FALL [None]
  - INJURY [None]
  - NERVE COMPRESSION [None]
  - OVERDOSE [None]
  - PHARMACEUTICAL PRODUCT COMPLAINT [None]
  - UMBILICAL HERNIA [None]
